FAERS Safety Report 5074004-2 (Version None)
Quarter: 2006Q3

REPORT INFORMATION
  Report Type: 
  Country: None (occurrence: None)
  Receive Date: 20060808
  Receipt Date: 20060426
  Transmission Date: 20061208
  Serious: No
  Sender: FDA-Public Use
  Company Number: US-AMGEN-KDL178452

PATIENT
  Sex: Male
  Weight: 136.2 kg

DRUGS (1)
  1. PROCRIT [Suspect]
     Indication: RENAL FAILURE CHRONIC
     Route: 058
     Dates: start: 20060201

REACTIONS (2)
  - DIARRHOEA [None]
  - DRUG INEFFECTIVE [None]
